FAERS Safety Report 15817750 (Version 1)
Quarter: 2019Q1

REPORT INFORMATION
  Report Type: Spontaneous
  Country: NL (occurrence: NL)
  Receive Date: 20190113
  Receipt Date: 20190113
  Transmission Date: 20190417
  Serious: Yes (Hospitalization)
  Sender: FDA-Public Use
  Company Number: NL-TEVA-2019-NL-998252

PATIENT
  Sex: Male
  Weight: 3 kg

DRUGS (2)
  1. CITALOPRAM [Suspect]
     Active Substance: CITALOPRAM HYDROBROMIDE
     Indication: OBSESSIVE-COMPULSIVE DISORDER
     Dosage: 1X PER DAY
  2. TEMAZEPAM. [Concomitant]
     Active Substance: TEMAZEPAM
     Dosage: 1DD 10-20MG AN
     Dates: start: 2018, end: 2018

REACTIONS (2)
  - Hypertonia neonatal [Recovering/Resolving]
  - Maternal exposure during pregnancy [Unknown]
